FAERS Safety Report 14470429 (Version 1)
Quarter: 2018Q1

REPORT INFORMATION
  Report Type: Spontaneous
  Country: US (occurrence: US)
  Receive Date: 20180131
  Receipt Date: 20180131
  Transmission Date: 20180509
  Serious: Yes (Life-Threatening, Hospitalization, Other)
  Sender: FDA-Public Use
  Company Number: US-GLENMARK PHARMACEUTICALS-2018GMK030942

PATIENT
  Age: 6 Month
  Sex: Female

DRUGS (1)
  1. LAMOTRIGINE. [Suspect]
     Active Substance: LAMOTRIGINE
     Indication: PRODUCT USED FOR UNKNOWN INDICATION
     Dosage: 5 PILLS MISSING AND ABOUT 5 TO 10 PILLS APPEARED TO HAVE BEEN ?SUCKED? ON
     Route: 065

REACTIONS (7)
  - Generalised tonic-clonic seizure [Recovered/Resolved]
  - Mydriasis [Recovered/Resolved]
  - Hypotension [Unknown]
  - Pupil fixed [Recovered/Resolved]
  - Respiratory arrest [Recovered/Resolved]
  - Status epilepticus [Recovered/Resolved]
  - Accidental overdose [Unknown]
